FAERS Safety Report 21658240 (Version 2)
Quarter: 2022Q4

REPORT INFORMATION
  Report Type: Spontaneous
  Country: CA (occurrence: CA)
  Receive Date: 20221129
  Receipt Date: 20221219
  Transmission Date: 20230113
  Serious: Yes (Hospitalization, Other)
  Sender: FDA-Public Use
  Company Number: CA-PFIZER INC-202101848800

PATIENT
  Age: 73 Year
  Sex: Female

DRUGS (5)
  1. XELJANZ XR [Suspect]
     Active Substance: TOFACITINIB CITRATE
     Indication: Rheumatoid arthritis
     Dosage: 11 MG, 1X/DAY
     Route: 048
     Dates: start: 20210205, end: 2022
  2. METHOTREXATE [Concomitant]
     Active Substance: METHOTREXATE
     Dosage: 25 MG, WEEKLY, ROUTE UNCLEAR AS BOTH SC AND PO ARE INDICATED
     Route: 058
  3. METHOTREXATE [Concomitant]
     Active Substance: METHOTREXATE
     Dosage: 25 MG, WEEKLY ROUTE UNCLEAR AS BOTH SC AND PO ARE INDICATED
     Route: 048
  4. HYDROXYCHLOROQUINE [Concomitant]
     Active Substance: HYDROXYCHLOROQUINE
     Dosage: 400 MG, 1X/DAY
     Route: 048
  5. PREDNISONE [Concomitant]
     Active Substance: PREDNISONE
     Dosage: UNK

REACTIONS (3)
  - Myocardial infarction [Unknown]
  - Cardiac disorder [Unknown]
  - Arthralgia [Unknown]
